FAERS Safety Report 26107867 (Version 2)
Quarter: 2025Q4

REPORT INFORMATION
  Report Type: Report from Study
  Country: CL (occurrence: CL)
  Receive Date: 20251201
  Receipt Date: 20251204
  Transmission Date: 20260118
  Serious: Yes (Death, Hospitalization)
  Sender: JOHNSON AND JOHNSON
  Company Number: CL-JNJFOC-20251174752

PATIENT
  Age: 58 Year
  Sex: Female

DRUGS (1)
  1. SIMPONI [Suspect]
     Active Substance: GOLIMUMAB
     Indication: Rheumatoid arthritis
     Route: 058
     Dates: start: 20231221, end: 20250922

REACTIONS (6)
  - Death [Fatal]
  - Shoulder operation [Unknown]
  - Decreased immune responsiveness [Unknown]
  - Bacterial infection [Unknown]
  - Pneumonia [Unknown]
  - Spinal operation [Unknown]

NARRATIVE: CASE EVENT DATE: 20251001
